FAERS Safety Report 7340827-X (Version None)
Quarter: 2011Q1

REPORT INFORMATION
  Report Type: 
  Country: None (occurrence: None)
  Receive Date: 20110309
  Receipt Date: 20110304
  Transmission Date: 20110831
  Serious: No
  Sender: FDA-Public Use
  Company Number: US-TEVA-269949USA

PATIENT
  Age: 32 Year
  Sex: Female
  Weight: 58.112 kg

DRUGS (2)
  1. PLAN B ONE-STEP [Suspect]
     Indication: POST COITAL CONTRACEPTION
     Route: 048
     Dates: start: 20110224, end: 20110224
  2. PLAN B ONE-STEP [Suspect]
     Route: 048
     Dates: start: 20110225, end: 20110225

REACTIONS (4)
  - SENSATION OF HEAVINESS [None]
  - VOMITING [None]
  - MENSTRUATION IRREGULAR [None]
  - NAUSEA [None]
